FAERS Safety Report 7171392-8 (Version None)
Quarter: 2010Q4

REPORT INFORMATION
  Report Type: 
  Country: None (occurrence: None)
  Receive Date: 20101217
  Receipt Date: 20101213
  Transmission Date: 20110411
  Serious: Yes (Death, Other)
  Sender: FDA-Public Use
  Company Number: JP-PFIZER INC-2009251957

PATIENT
  Age: 43 Year
  Sex: Female
  Weight: 52.6 kg

DRUGS (14)
  1. SILDENAFIL CITRATE [Suspect]
     Indication: PULMONARY ARTERIAL HYPERTENSION
     Dosage: 20 MG, 3X/DAY
     Route: 048
     Dates: start: 20080925, end: 20101001
  2. FOLIAMIN [Concomitant]
     Dosage: UNK
     Route: 048
     Dates: start: 20100708, end: 20101001
  3. THYRADIN [Concomitant]
     Dosage: UNK
     Route: 048
     Dates: start: 20080925, end: 20101001
  4. URSO 250 [Concomitant]
     Dosage: UNK
     Route: 048
     Dates: start: 20080925, end: 20101001
  5. SELBEX [Concomitant]
     Dosage: UNK
     Dates: start: 20080925, end: 20100708
  6. VITAMEDIN CAPSULE [Concomitant]
     Dosage: UNK
     Route: 048
     Dates: start: 20080925, end: 20101001
  7. RESLIN [Concomitant]
     Dosage: UNK
     Route: 048
     Dates: start: 20080925, end: 20101001
  8. LEXOTAN [Concomitant]
     Dosage: UNK
     Dates: start: 20080925, end: 20101001
  9. LUDIOMIL [Concomitant]
     Dosage: UNK
     Dates: start: 20080925, end: 20101001
  10. LENDORMIN [Concomitant]
     Dosage: UNK
     Dates: start: 20080925, end: 20101001
  11. PREDONINE [Concomitant]
     Dosage: UNK
     Dates: start: 20080927, end: 20101001
  12. OMEPRAL [Concomitant]
     Dosage: UNK
     Dates: start: 20081001, end: 20090520
  13. ENDOXAN [Concomitant]
     Dosage: UNK
     Dates: start: 20081012, end: 20100408
  14. WARFARIN POTASSIUM [Concomitant]
     Dosage: UNK
     Route: 048
     Dates: start: 20081030, end: 20101001

REACTIONS (2)
  - CARDIAC FAILURE CONGESTIVE [None]
  - DEATH [None]
